FAERS Safety Report 8075563-8 (Version None)
Quarter: 2012Q1

REPORT INFORMATION
  Report Type: 
  Country: None (occurrence: None)
  Receive Date: 20120127
  Receipt Date: 20120118
  Transmission Date: 20120608
  Serious: Yes (Hospitalization, Other)
  Sender: FDA-Public Use
  Company Number: US-BRISTOL-MYERS SQUIBB COMPANY-16356537

PATIENT
  Age: 58 Year
  Sex: Male
  Weight: 78 kg

DRUGS (2)
  1. ERBITUX [Suspect]
     Indication: COLORECTAL CANCER
     Dosage: RESTARTED ON 4JAN12.
  2. VITAMIN TAB [Concomitant]

REACTIONS (11)
  - FATIGUE [None]
  - ASCITES [None]
  - HYPOKALAEMIA [None]
  - HYPOMAGNESAEMIA [None]
  - SKIN FISSURES [None]
  - DEHYDRATION [None]
  - DIZZINESS [None]
  - URTICARIA [None]
  - PRURITUS [None]
  - PAIN [None]
  - FLATULENCE [None]
